FAERS Safety Report 9691576 (Version 1)
Quarter: 2013Q4

REPORT INFORMATION
  Report Type: Report from Study
  Country: CA (occurrence: CA)
  Receive Date: 20131115
  Receipt Date: 20131115
  Transmission Date: 20140711
  Serious: Yes (Other)
  Sender: FDA-Public Use
  Company Number: CA-ROCHE-1300387

PATIENT
  Sex: Female
  Weight: 70.3 kg

DRUGS (3)
  1. RITUXAN [Suspect]
     Indication: NEUROPATHY PERIPHERAL
     Dosage: FREQUENCY: DAY 1 AND 15
     Route: 042
     Dates: start: 20101001
  2. IMURAN [Suspect]
     Indication: PRODUCT USED FOR UNKNOWN INDICATION
     Route: 065
     Dates: end: 2012
  3. PLASMA EXCHANGE [Concomitant]
     Dosage: DISCONTINUED ON UNKNOWN DATE
     Route: 065

REACTIONS (3)
  - Optic nerve disorder [Not Recovered/Not Resolved]
  - Drug ineffective [Not Recovered/Not Resolved]
  - Neuropathy peripheral [Not Recovered/Not Resolved]
